FAERS Safety Report 23697536 (Version 1)
Quarter: 2024Q2

REPORT INFORMATION
  Report Type: Spontaneous
  Country: US (occurrence: US)
  Receive Date: 20240402
  Receipt Date: 20240402
  Transmission Date: 20240715
  Serious: No
  Sender: FDA-Public Use
  Company Number: US-IPSEN Group, Research and Development-2024-05395

PATIENT
  Sex: Male
  Weight: 95 kg

DRUGS (20)
  1. SOMATULINE DEPOT [Suspect]
     Active Substance: LANREOTIDE ACETATE
     Indication: Carcinoid tumour
     Route: 058
     Dates: start: 202212
  2. MULTAQ [Concomitant]
     Active Substance: DRONEDARONE
  3. DICLOFENAC [Concomitant]
     Active Substance: DICLOFENAC
  4. WARFARIN [Concomitant]
     Active Substance: WARFARIN
  5. ATORVASTATIN [Concomitant]
     Active Substance: ATORVASTATIN
  6. CARVEDILOL [Concomitant]
     Active Substance: CARVEDILOL
  7. ASPIRIN [Concomitant]
     Active Substance: ASPIRIN
  8. LEVOTHYROXINE [Concomitant]
     Active Substance: LEVOTHYROXINE\LEVOTHYROXINE SODIUM
  9. PANTOPRAZOLE [Concomitant]
     Active Substance: PANTOPRAZOLE
  10. VITAMIN B12 [Concomitant]
     Active Substance: CYANOCOBALAMIN
  11. BENZONATATE [Concomitant]
     Active Substance: BENZONATATE
  12. FISH OIL [Concomitant]
     Active Substance: FISH OIL
  13. LYSINE [Concomitant]
     Active Substance: LYSINE
  14. FERROUS GLUCONATE [Concomitant]
     Active Substance: FERROUS GLUCONATE
  15. GLUCOSAMINE HYDROCHLORIDE;MAGNESIUM CHELATE;MAGNESIUM CITRATE;MAGNESIU [Concomitant]
  16. AMOXICILLIN [Concomitant]
     Active Substance: AMOXICILLIN
  17. ALLEGRA [Concomitant]
     Active Substance: FEXOFENADINE HYDROCHLORIDE
  18. MAGNESIUM [Concomitant]
     Active Substance: MAGNESIUM
  19. IPRATROPIUM BROMIDE [Concomitant]
     Active Substance: IPRATROPIUM BROMIDE\IPRATROPIUM BROMIDE ANHYDROUS
  20. CALCIUM [Concomitant]
     Active Substance: CALCIUM

REACTIONS (1)
  - Symptom recurrence [Unknown]
